FAERS Safety Report 8485923 (Version 2)
Quarter: 2013Q2

REPORT INFORMATION
  Report Type: Spontaneous
  Country: BR (occurrence: BR)
  Receive Date: 20120331
  Receipt Date: 20130509
  Transmission Date: 20140414
  Serious: Yes (Hospitalization, Other)
  Sender: FDA-Public Use
  Company Number: BR-AMGEN-BRASP2012018692

PATIENT
  Age: 66 Year
  Sex: Male
  Weight: 101 kg

DRUGS (10)
  1. ENBREL [Suspect]
     Indication: RHEUMATOID ARTHRITIS
     Dosage: 50 MG, WEEKLY
     Route: 058
     Dates: start: 201201
  2. LOSARTAN [Concomitant]
     Indication: BLOOD PRESSURE INCREASED
     Dosage: 50 MG, 2X/DAY
  3. ATENOLOL [Concomitant]
     Indication: BLOOD PRESSURE INCREASED
     Dosage: 25 MG, 2X/DAY (EVERY 12 HOURS)
  4. NIFEDIPIN RETARD [Concomitant]
     Dosage: 20 MG, BID
  5. HYDROXYCHLOROQUINE SULFATE [Concomitant]
     Dosage: 400 MG, 1X/DAY
  6. TRAMADOL [Concomitant]
     Dosage: STRENGTH 55MG , UNK
  7. FOLIC ACID [Concomitant]
     Dosage: STRENGTH 10 MG , UNK
  8. NIMESULIDE [Concomitant]
     Dosage: STRENGTH 50 MG, UNK
  9. CYCLOBENZAPRINE [Concomitant]
     Dosage: STRENGTH 7.5 MG, UNK
  10. METHOTREXATE [Concomitant]
     Dosage: STRENGTH 2.5MG, UNK

REACTIONS (5)
  - Gastrointestinal disorder [Recovered/Resolved]
  - Feeling abnormal [Not Recovered/Not Resolved]
  - Haemorrhage [Not Recovered/Not Resolved]
  - Erythema [Unknown]
  - Skin sensitisation [Unknown]
